FAERS Safety Report 15074519 (Version 1)
Quarter: 2018Q2

REPORT INFORMATION
  Report Type: Spontaneous
  Country: US (occurrence: US)
  Receive Date: 20180627
  Receipt Date: 20180627
  Transmission Date: 20180711
  Serious: No
  Sender: FDA-Public Use
  Company Number: US-SAOL THERAPEUTICS-2018SAO00583

PATIENT

DRUGS (3)
  1. BACLOFEN. [Suspect]
     Active Substance: BACLOFEN
     Indication: SPINAL PAIN
     Route: 037
  2. HYDROMORPHONE [Suspect]
     Active Substance: HYDROMORPHONE
     Route: 037
  3. OXYCODONE [Suspect]
     Active Substance: OXYCODONE
     Dosage: 90 UNK, UNK
     Route: 048
     Dates: start: 2010

REACTIONS (3)
  - Neuralgia [Unknown]
  - Drug ineffective for unapproved indication [None]
  - Intentional product misuse [Unknown]
